FAERS Safety Report 7003940-2 (Version None)
Quarter: 2010Q3

REPORT INFORMATION
  Report Type: 
  Country: None (occurrence: None)
  Receive Date: 20100920
  Receipt Date: 20091218
  Transmission Date: 20110219
  Serious: Yes (Other)
  Sender: FDA-Public Use
  Company Number: US-WYE-H12708609

PATIENT
  Sex: Female

DRUGS (4)
  1. PRISTIQ [Suspect]
     Indication: DEPRESSION
     Route: 048
     Dates: start: 20080101
  2. METOPROLOL TARTRATE [Concomitant]
     Dosage: UNKNOWN
  3. PREMARIN [Concomitant]
     Dosage: UNKNOWN
  4. XANAX [Concomitant]
     Dosage: UNKNOWN

REACTIONS (1)
  - BLOOD PRESSURE INCREASED [None]
